FAERS Safety Report 8387554-8 (Version None)
Quarter: 2012Q2

REPORT INFORMATION
  Report Type: 
  Country: None (occurrence: None)
  Receive Date: 20120525
  Receipt Date: 20120522
  Transmission Date: 20120825
  Serious: Yes (Other)
  Sender: FDA-Public Use
  Company Number: PHEH2012US006534

PATIENT
  Sex: Female

DRUGS (4)
  1. AFINITOR [Suspect]
     Indication: TUBEROUS SCLEROSIS
     Dosage: 5 MG, DAILY
     Route: 048
     Dates: start: 20120127
  2. SEROQUEL [Concomitant]
  3. DEPAKOTE [Concomitant]
  4. SABRIL [Concomitant]

REACTIONS (6)
  - ACNE [None]
  - STOMATITIS [None]
  - CONVULSION [None]
  - CEREBRAL ATROPHY [None]
  - FUNGAL INFECTION [None]
  - SINUSITIS [None]
